FAERS Safety Report 6824898-2 (Version None)
Quarter: 2010Q3

REPORT INFORMATION
  Report Type: 
  Country: None (occurrence: None)
  Receive Date: 20100708
  Receipt Date: 20070111
  Transmission Date: 20110219
  Serious: Yes (Other)
  Sender: FDA-Public Use
  Company Number: US-PFIZER INC-2006152360

PATIENT
  Sex: Male

DRUGS (2)
  1. CHANTIX [Suspect]
     Indication: EX-TOBACCO USER
     Dates: start: 20061105
  2. TYLENOL (CAPLET) [Concomitant]

REACTIONS (6)
  - ABNORMAL DREAMS [None]
  - COLD SWEAT [None]
  - DIZZINESS [None]
  - FLATULENCE [None]
  - HALO VISION [None]
  - NAUSEA [None]
